FAERS Safety Report 13621892 (Version 1)
Quarter: 2017Q2

REPORT INFORMATION
  Report Type: Spontaneous
  Country: US (occurrence: US)
  Receive Date: 20170607
  Receipt Date: 20170607
  Transmission Date: 20170830
  Serious: No
  Sender: FDA-Public Use
  Company Number: US-ROCHE-1758118

PATIENT
  Sex: Female

DRUGS (13)
  1. ESTER C (UNITED STATES) [Concomitant]
     Route: 065
  2. SPIRONOLACTONE/HCTZ [Concomitant]
     Active Substance: HYDROCHLOROTHIAZIDE\SPIRONOLACTONE
     Dosage: TAKE 1/4 OF A TABLET
     Route: 065
  3. BIOTIN [Concomitant]
     Active Substance: BIOTIN
     Route: 065
  4. SYNTHROID [Concomitant]
     Active Substance: LEVOTHYROXINE SODIUM
     Route: 065
  5. ASPIRIN. [Concomitant]
     Active Substance: ASPIRIN
     Route: 065
  6. VITAMIN D3 [Concomitant]
     Active Substance: CHOLECALCIFEROL
     Route: 065
  7. POTASSIUM GLUCONATE [Concomitant]
     Active Substance: POTASSIUM GLUCONATE
     Route: 065
  8. EXJADE [Concomitant]
     Active Substance: DEFERASIROX
     Route: 065
  9. XGEVA [Concomitant]
     Active Substance: DENOSUMAB
     Route: 065
  10. SPIRIVA [Concomitant]
     Active Substance: TIOTROPIUM BROMIDE MONOHYDRATE
     Dosage: AS NEEDED
     Route: 065
  11. XELODA [Suspect]
     Active Substance: CAPECITABINE
     Indication: BREAST CANCER
     Dosage: ONCE IN THE MORNING AND ONCE IN THE EVENING
     Route: 065
     Dates: start: 20160102
  12. SOTALOL. [Concomitant]
     Active Substance: SOTALOL
     Dosage: ONCE IN THE MORNING AND ONCE AT NIGHT
     Route: 065
  13. TIOTROPIUM [Concomitant]
     Active Substance: TIOTROPIUM
     Route: 065

REACTIONS (10)
  - Insomnia [Not Recovered/Not Resolved]
  - Tooth fracture [Not Recovered/Not Resolved]
  - Fatigue [Not Recovered/Not Resolved]
  - Decreased appetite [Not Recovered/Not Resolved]
  - Constipation [Not Recovered/Not Resolved]
  - Gait disturbance [Not Recovered/Not Resolved]
  - Peripheral swelling [Not Recovered/Not Resolved]
  - Blister [Not Recovered/Not Resolved]
  - Diarrhoea [Not Recovered/Not Resolved]
  - Balance disorder [Not Recovered/Not Resolved]
